FAERS Safety Report 15672596 (Version 1)
Quarter: 2018Q4

REPORT INFORMATION
  Report Type: Spontaneous
  Country: US (occurrence: US)
  Receive Date: 20181129
  Receipt Date: 20181129
  Transmission Date: 20190205
  Serious: No
  Sender: FDA-Public Use
  Company Number: US-ASTRAZENECA-2018SF44048

PATIENT
  Age: 34926 Day
  Sex: Female
  Weight: 63.5 kg

DRUGS (9)
  1. KLOR-CON M10 [Concomitant]
     Active Substance: POTASSIUM CHLORIDE
     Route: 048
  2. SYMBICORT [Suspect]
     Active Substance: BUDESONIDE\FORMOTEROL FUMARATE DIHYDRATE
     Indication: CHRONIC OBSTRUCTIVE PULMONARY DISEASE
     Dosage: 160/4.5MCG, 2 PUFFS TWICE DAILY
     Route: 055
     Dates: start: 20181026
  3. OSCAL [Concomitant]
     Active Substance: CALCIUM CARBONATE
     Route: 048
  4. COQ10 [Concomitant]
     Active Substance: UBIDECARENONE
     Indication: CARDIOVASCULAR EVENT PROPHYLAXIS
     Route: 048
  5. LEVOTHYROXINE. [Concomitant]
     Active Substance: LEVOTHYROXINE
     Indication: THYROID DISORDER
     Route: 048
  6. FUROSEMIDE. [Concomitant]
     Active Substance: FUROSEMIDE
     Indication: OEDEMA
     Route: 048
  7. PANTOPRAZOLE [Concomitant]
     Active Substance: PANTOPRAZOLE
     Indication: GASTROOESOPHAGEAL REFLUX DISEASE
     Route: 048
  8. CARVEDILOL. [Concomitant]
     Active Substance: CARVEDILOL
     Indication: BLOOD PRESSURE MEASUREMENT
     Route: 048
  9. GABAPENTIN. [Concomitant]
     Active Substance: GABAPENTIN
     Indication: NEUROPATHY PERIPHERAL
     Route: 048

REACTIONS (8)
  - Gastric dilatation [Not Recovered/Not Resolved]
  - Fatigue [Not Recovered/Not Resolved]
  - Blood iron decreased [Not Recovered/Not Resolved]
  - Somnolence [Not Recovered/Not Resolved]
  - Feeling abnormal [Not Recovered/Not Resolved]
  - Hypertension [Not Recovered/Not Resolved]
  - Musculoskeletal pain [Recovering/Resolving]
  - Intentional product misuse [Unknown]

NARRATIVE: CASE EVENT DATE: 20181026
